FAERS Safety Report 7638856-1 (Version None)
Quarter: 2011Q3

REPORT INFORMATION
  Report Type: 
  Country: None (occurrence: None)
  Receive Date: 20110727
  Receipt Date: 20110721
  Transmission Date: 20111222
  Serious: Yes (Life-Threatening, Hospitalization, Other)
  Sender: FDA-Public Use
  Company Number: JP-PFIZER INC-2011159960

PATIENT
  Age: 80 Year
  Sex: Female
  Weight: 51 kg

DRUGS (10)
  1. CANDESARTAN CILEXETIL [Concomitant]
     Indication: HYPERTENSION
     Dosage: 8 MG, 1X/DAY
     Route: 048
  2. ADEFURONIC [Concomitant]
     Indication: PAIN
     Dosage: 25 MG/ DAY
     Route: 048
  3. ELCATONIN [Concomitant]
     Indication: OSTEOPOROSIS
  4. SANCOBA [Concomitant]
     Indication: VITAMIN SUPPLEMENTATION
  5. TALION [Concomitant]
     Indication: HYPERSENSITIVITY
  6. MUCOSTA [Concomitant]
     Indication: GASTRITIS
     Dosage: 100 MG, 3X/DAY
  7. SPIRONOLACTONE [Concomitant]
     Indication: HYPERTENSION
     Dosage: 25 MG, 2X/DAY
     Route: 048
  8. LYRICA [Suspect]
     Indication: NEUROPATHY PERIPHERAL
     Dosage: 75 MG, 2X/DAY
     Route: 048
     Dates: start: 20110617, end: 20110709
  9. RISEDRONATE SODIUM [Suspect]
     Indication: OSTEOPOROSIS
     Dosage: 17.5 MG, UNK
     Route: 048
  10. LIMAPROST [Concomitant]
     Indication: SPINAL COLUMN STENOSIS
     Dosage: 5 UG/ DAY
     Route: 048

REACTIONS (3)
  - GLOMERULAR FILTRATION RATE DECREASED [None]
  - HYPERCALCAEMIA [None]
  - DIZZINESS [None]
